FAERS Safety Report 7106169-2 (Version None)
Quarter: 2010Q4

REPORT INFORMATION
  Report Type: 
  Country: None (occurrence: None)
  Receive Date: 20101116
  Receipt Date: 20101115
  Transmission Date: 20110411
  Serious: Yes (Hospitalization)
  Sender: FDA-Public Use
  Company Number: GXKR2009DE02521

PATIENT
  Age: 77 Year
  Sex: Male
  Weight: 80 kg

DRUGS (14)
  1. ACETYLSALICYLIC ACID SRT [Suspect]
     Indication: CORONARY ARTERY DISEASE
     Dosage: 100 MG, 1 IN DAY
     Route: 048
     Dates: start: 19880101, end: 20080306
  2. FALITHROM (NGX) [Suspect]
     Indication: ATRIAL FLUTTER
     Dosage: UNK
     Route: 048
     Dates: start: 20050201, end: 20080306
  3. SIMVASTATIN [Concomitant]
     Indication: HYPERLIPIDAEMIA
     Dosage: 20MG, 1 IN DAY
     Route: 048
     Dates: start: 20050101, end: 20080306
  4. SPIRONOLACTONE [Concomitant]
  5. PANTOPRAZOLE SODIUM [Concomitant]
  6. MOLSIDOMINE [Concomitant]
  7. MAGALDRATE [Concomitant]
  8. ISOSORBIDE MONONITRATE [Concomitant]
  9. HYDROCHLOROTHIAZIDE [Concomitant]
  10. DIGITOXIN [Concomitant]
  11. BISOPROLOL [Concomitant]
  12. ALLOPURINOL [Concomitant]
  13. ACTRAPID PENFILL [Concomitant]
  14. PREDNISOLONE [Concomitant]
     Indication: IDIOPATHIC THROMBOCYTOPENIC PURPURA
     Dosage: 5 MG, 1 IN DAY
     Route: 048

REACTIONS (4)
  - DRUG INTERACTION [None]
  - GASTRITIS EROSIVE [None]
  - GASTROINTESTINAL HAEMORRHAGE [None]
  - LOWER GASTROINTESTINAL HAEMORRHAGE [None]
